FAERS Safety Report 14934737 (Version 1)
Quarter: 2018Q2

REPORT INFORMATION
  Report Type: Spontaneous
  Country: DE (occurrence: DE)
  Receive Date: 20180524
  Receipt Date: 20180524
  Transmission Date: 20180711
  Serious: Yes (Other)
  Sender: FDA-Public Use
  Company Number: DE-TEVA-2018-DE-897577

PATIENT
  Age: 77 Year
  Sex: Female
  Weight: 78 kg

DRUGS (13)
  1. METOPROLOL. [Concomitant]
     Active Substance: METOPROLOL
     Indication: PRODUCT USED FOR UNKNOWN INDICATION
     Dosage: 95 MILLIGRAM DAILY; 95 MG, QD
  2. VALSARTAN AND HYDROCHLOROTHIAZIDE [Concomitant]
     Active Substance: HYDROCHLOROTHIAZIDE\VALSARTAN
     Indication: PRODUCT USED FOR UNKNOWN INDICATION
     Dosage: 1 DOSAGE FORMS DAILY; 1 DF, QD, 50000 IU (INTERNATIONAL UNIT) DAILY
  3. STEROFUNDIN [Concomitant]
     Active Substance: CALCIUM CHLORIDE\MAGNESIUM CHLORIDE\POTASSIUM CHLORIDE\SODIUM ACETATE\SODIUM CHLORIDE
     Indication: PRODUCT USED FOR UNKNOWN INDICATION
     Dosage: 1250 ML, UNK
     Route: 065
     Dates: start: 20170823
  4. TRANEXAMIC ACID. [Suspect]
     Active Substance: TRANEXAMIC ACID
     Dosage: 1
     Route: 065
  5. ATORVASTATIN [Concomitant]
     Active Substance: ATORVASTATIN
     Indication: PRODUCT USED FOR UNKNOWN INDICATION
     Dosage: 10 MILLIGRAM DAILY; 10 MG, QD ; 50000 IU (INTERNATIONAL UNIT) DAILY;
     Route: 065
  6. TRANEXAMIC ACID. [Suspect]
     Active Substance: TRANEXAMIC ACID
     Indication: PRODUCT USED FOR UNKNOWN INDICATION
     Dosage: 1 G, UNK
     Route: 065
     Dates: start: 20170823
  7. ASPIRIN. [Concomitant]
     Active Substance: ASPIRIN
     Indication: PRODUCT USED FOR UNKNOWN INDICATION
     Dosage: 100 MILLIGRAM DAILY; 100 MG, QD ; 50000 IU (INTERNATIONAL UNIT) DAILY;
     Route: 065
  8. HEPARIN-RATIOPHARM [Suspect]
     Active Substance: HEPARIN SODIUM
     Indication: PRODUCT USED FOR UNKNOWN INDICATION
     Dosage: 5000 IU, UNK, 50000 IU (INTERNATIONAL UNIT) DAILY
     Route: 065
     Dates: start: 20170823
  9. NORADRENALIN [Suspect]
     Active Substance: NOREPINEPHRINE\NOREPINEPHRINE BITARTRATE
     Indication: PRODUCT USED FOR UNKNOWN INDICATION
     Dosage: UP TO 0.35 UG/KG/MIN PERIOPERATIVE (7 SINGLE DOSES OF 10-20 UG)
     Route: 065
  10. NORADRENALIN [Suspect]
     Active Substance: NOREPINEPHRINE\NOREPINEPHRINE BITARTRATE
     Dosage: 1.0 UG/KG/MIN 10 HRS POST OPERATIVE
     Route: 065
  11. AMLODIPINE [Concomitant]
     Active Substance: AMLODIPINE BESYLATE
     Indication: PRODUCT USED FOR UNKNOWN INDICATION
     Dosage: 2.5 MILLIGRAM DAILY; 2.5 MG, QD ; 50000 IU (INTERNATIONAL UNIT) DAILY
     Route: 065
  12. CUSTODIOL [Concomitant]
     Indication: PRODUCT USED FOR UNKNOWN INDICATION
     Dosage: 950 ML, UNK
     Route: 065
     Dates: start: 20170823
  13. METOPROLOL. [Concomitant]
     Active Substance: METOPROLOL
     Dosage: 47.5 MG, Q12H 50000 IU (INTERNATIONAL UNIT) DAILY;
     Route: 065

REACTIONS (4)
  - Transaminases increased [Unknown]
  - Therapeutic response decreased [Unknown]
  - Alanine aminotransferase increased [Unknown]
  - Renal failure [Unknown]

NARRATIVE: CASE EVENT DATE: 20170823
